FAERS Safety Report 12009240 (Version 1)
Quarter: 2016Q1

REPORT INFORMATION
  Report Type: Spontaneous
  Country: US (occurrence: US)
  Receive Date: 20160205
  Receipt Date: 20160205
  Transmission Date: 20160526
  Serious: Yes (Other)
  Sender: FDA-Public Use
  Company Number: US-BEH-2016058286

PATIENT
  Sex: Male
  Weight: 76 kg

DRUGS (41)
  1. DIPHENHYDRAMINE. [Concomitant]
     Active Substance: DIPHENHYDRAMINE
  2. LIDOCAINE/PRILOCAINE [Concomitant]
     Active Substance: LIDOCAINE\PRILOCAINE
  3. CODEINE [Concomitant]
     Active Substance: CODEINE
  4. TYLENOL [Concomitant]
     Active Substance: ACETAMINOPHEN
  5. DEPO (MEDROXYPROGESTERONE) [Concomitant]
     Active Substance: MEDROXYPROGESTERONE
  6. SYMBICORT [Concomitant]
     Active Substance: BUDESONIDE\FORMOTEROL FUMARATE DIHYDRATE
  7. SULFASALAZINE. [Concomitant]
     Active Substance: SULFASALAZINE
  8. EPIPEN [Concomitant]
     Active Substance: EPINEPHRINE
  9. EUFLEXXA [Concomitant]
     Active Substance: HYALURONATE SODIUM
  10. LISINOPRIL. [Concomitant]
     Active Substance: LISINOPRIL
  11. HIZENTRA [Suspect]
     Active Substance: HUMAN IMMUNOGLOBULIN G
     Indication: IMMUNODEFICIENCY COMMON VARIABLE
  12. ACETAMINOPHEN. [Concomitant]
     Active Substance: ACETAMINOPHEN
  13. PEPCID [Concomitant]
     Active Substance: FAMOTIDINE
  14. ASPIRIN. [Concomitant]
     Active Substance: ASPIRIN
  15. TEMAZEPAM. [Concomitant]
     Active Substance: TEMAZEPAM
  16. LIDODERM [Concomitant]
     Active Substance: LIDOCAINE
  17. HIZENTRA [Suspect]
     Active Substance: HUMAN IMMUNOGLOBULIN G
     Route: 058
     Dates: start: 20110106
  18. PROVENTIL [Concomitant]
     Active Substance: ALBUTEROL
  19. FOLIC ACID. [Concomitant]
     Active Substance: FOLIC ACID
  20. TRETINOIN. [Concomitant]
     Active Substance: TRETINOIN
  21. BACTROBAN [Concomitant]
     Active Substance: MUPIROCIN\MUPIROCIN CALCIUM
  22. ASTELIN [Concomitant]
     Active Substance: AZELASTINE HYDROCHLORIDE
  23. OMEPRAZOLE. [Concomitant]
     Active Substance: OMEPRAZOLE
  24. LEVOTHYROXINE. [Concomitant]
     Active Substance: LEVOTHYROXINE
  25. HIZENTRA [Suspect]
     Active Substance: HUMAN IMMUNOGLOBULIN G
  26. NASONEX [Concomitant]
     Active Substance: MOMETASONE FUROATE
  27. PREVIDENT [Concomitant]
     Active Substance: SODIUM FLUORIDE
  28. NYSTATIN. [Concomitant]
     Active Substance: NYSTATIN
  29. OFLOXACIN. [Concomitant]
     Active Substance: OFLOXACIN
  30. ZENPEP [Concomitant]
     Active Substance: PANCRELIPASE AMYLASE\PANCRELIPASE LIPASE\PANCRELIPASE PROTEASE
  31. DONNATAL [Concomitant]
     Active Substance: ATROPINE SULFATE\HYOSCYAMINE SULFATE\PHENOBARBITAL\SCOPOLAMINE HYDROBROMIDE
  32. MORPHINE [Concomitant]
     Active Substance: MORPHINE
  33. AMBIEN [Concomitant]
     Active Substance: ZOLPIDEM TARTRATE
  34. NITROSTAT [Concomitant]
     Active Substance: NITROGLYCERIN
  35. NABUMETONE. [Concomitant]
     Active Substance: NABUMETONE
  36. LMX [Concomitant]
     Active Substance: LIDOCAINE
  37. OXYCONTIN [Concomitant]
     Active Substance: OXYCODONE HYDROCHLORIDE
  38. PROMETHAZINE [Concomitant]
     Active Substance: PROMETHAZINE\PROMETHAZINE HYDROCHLORIDE
  39. VENTOLIN [Concomitant]
     Active Substance: ALBUTEROL SULFATE
  40. METHYLPHENIDATE. [Concomitant]
     Active Substance: METHYLPHENIDATE
  41. CONCERTA [Concomitant]
     Active Substance: METHYLPHENIDATE HYDROCHLORIDE

REACTIONS (2)
  - Ill-defined disorder [Unknown]
  - Hypersensitivity [Unknown]
